FAERS Safety Report 4388904-X (Version None)
Quarter: 2004Q2

REPORT INFORMATION
  Report Type: 
  Country: None (occurrence: None)
  Receive Date: 20040628
  Receipt Date: 20040618
  Transmission Date: 20050107
  Serious: Yes (Life-Threatening, Hospitalization)
  Sender: FDA-Public Use
  Company Number: JP-2004-026888

PATIENT
  Age: 68 Year
  Sex: Female
  Weight: 62 kg

DRUGS (7)
  1. BETAFERON (INTERFERON BETA - 1B) INJECTION [Suspect]
     Indication: MULTIPLE SCLEROSIS
     Dosage: 8 MIU, EVERY 2D, SUBCUTANEOUS
     Route: 058
     Dates: start: 20040510, end: 20040528
  2. PRAVASTATIN SODIUM [Concomitant]
  3. PARIET (RABEPRAZOLE SODIUM) [Concomitant]
  4. LENDORM [Concomitant]
  5. ASPARA K (ASPARTATE POTASSIUM) [Concomitant]
  6. TEGRETOL [Concomitant]
  7. ONE-ALPHA (ALFACALCIDOL) [Concomitant]

REACTIONS (5)
  - BLOOD BETA-D-GLUCAN INCREASED [None]
  - FATIGUE [None]
  - INTERSTITIAL LUNG DISEASE [None]
  - OXYGEN SATURATION DECREASED [None]
  - PYREXIA [None]
